FAERS Safety Report 11533407 (Version 1)
Quarter: 2015Q3

REPORT INFORMATION
  Report Type: Spontaneous
  Country: JP (occurrence: JP)
  Receive Date: 20150921
  Receipt Date: 20150921
  Transmission Date: 20151125
  Serious: Yes (Hospitalization, Other)
  Sender: FDA-Public Use
  Company Number: JP-GILEAD-2007-0012898

PATIENT
  Age: 43 Year
  Sex: Male

DRUGS (6)
  1. STOCRIN [Concomitant]
     Active Substance: EFAVIRENZ
     Indication: KAPOSI^S SARCOMA AIDS RELATED
  2. VIREAD [Suspect]
     Active Substance: TENOFOVIR DISOPROXIL FUMARATE
     Indication: HIV INFECTION
     Dosage: 300 MG, QD
     Route: 048
     Dates: start: 2006
  3. EMTRIVA [Suspect]
     Active Substance: EMTRICITABINE
     Indication: KAPOSI^S SARCOMA AIDS RELATED
  4. VIREAD [Suspect]
     Active Substance: TENOFOVIR DISOPROXIL FUMARATE
     Indication: KAPOSI^S SARCOMA AIDS RELATED
  5. STOCRIN [Concomitant]
     Active Substance: EFAVIRENZ
     Indication: HIV INFECTION
     Dosage: UNK
     Dates: start: 2006
  6. EMTRIVA [Suspect]
     Active Substance: EMTRICITABINE
     Indication: HIV INFECTION
     Dosage: 200 MG, QD
     Route: 048
     Dates: start: 2006

REACTIONS (2)
  - Kaposi^s sarcoma AIDS related [Recovered/Resolved]
  - Immune reconstitution inflammatory syndrome [Recovered/Resolved]

NARRATIVE: CASE EVENT DATE: 200605
